FAERS Safety Report 14523384 (Version 1)
Quarter: 2018Q1

REPORT INFORMATION
  Report Type: Spontaneous
  Country: GB (occurrence: GB)
  Receive Date: 20180212
  Receipt Date: 20180212
  Transmission Date: 20180509
  Serious: Yes (Hospitalization)
  Sender: FDA-Public Use
  Company Number: GB-EMD SERONO-9010561

PATIENT
  Sex: Female

DRUGS (1)
  1. REBIF [Suspect]
     Active Substance: INTERFERON BETA-1A
     Indication: MULTIPLE SCLEROSIS
     Dosage: PRE FILLED INJECTION, 22 MCG (6 MIU)
     Route: 058

REACTIONS (3)
  - Musculoskeletal disorder [Recovering/Resolving]
  - Tendon disorder [Recovering/Resolving]
  - Procedural pain [Unknown]
